FAERS Safety Report 6817602-5 (Version None)
Quarter: 2010Q3

REPORT INFORMATION
  Report Type: 
  Country: None (occurrence: None)
  Receive Date: 20100706
  Receipt Date: 20100628
  Transmission Date: 20110219
  Serious: Yes (Hospitalization, Disabling, Other)
  Sender: FDA-Public Use
  Company Number: AU-B.I. PHARMACEUTICALS,INC./RIDGEFIELD-2010-AU-00491AU

PATIENT
  Sex: Male
  Weight: 48 kg

DRUGS (1)
  1. MICARDIS [Suspect]
     Dates: start: 20090406, end: 20100320

REACTIONS (1)
  - NON-SMALL CELL LUNG CANCER [None]
